FAERS Safety Report 6214147-0 (Version None)
Quarter: 2009Q2

REPORT INFORMATION
  Report Type: 
  Country: None (occurrence: None)
  Receive Date: 20090604
  Receipt Date: 20090527
  Transmission Date: 20091009
  Serious: Yes (Other)
  Sender: FDA-Public Use
  Company Number: US-ROCHE-635222

PATIENT

DRUGS (2)
  1. CAPECITABINE [Suspect]
     Indication: BREAST CANCER
     Dosage: GIVEN ON DAYS 1-7 AND 15-21 OF A 28 DAYS CYCLE
     Route: 048
  2. VORINOSTAT [Suspect]
     Indication: BREAST CANCER
     Dosage: GIVEN ON DAYS 1-7 AND 15-21 OF A 28 DAYS CYCLE
     Route: 048

REACTIONS (1)
  - INTESTINAL PERFORATION [None]
